FAERS Safety Report 8273238-3 (Version None)
Quarter: 2012Q2

REPORT INFORMATION
  Report Type: 
  Country: None (occurrence: None)
  Receive Date: 20120411
  Receipt Date: 20120402
  Transmission Date: 20120825
  Serious: Yes (Other)
  Sender: FDA-Public Use
  Company Number: JP-PFIZER INC-2012083321

PATIENT
  Age: 40 Year
  Sex: Male

DRUGS (1)
  1. ZYVOX [Suspect]
     Indication: ARTERIOVENOUS GRAFT SITE INFECTION
     Dosage: 1200 MG/DAY
     Route: 041
     Dates: start: 20110916, end: 20111004

REACTIONS (1)
  - INTERNATIONAL NORMALISED RATIO INCREASED [None]
